FAERS Safety Report 21147639 (Version 1)
Quarter: 2022Q3

REPORT INFORMATION
  Report Type: Spontaneous
  Country: US (occurrence: None)
  Receive Date: 20220728
  Receipt Date: 20220728
  Transmission Date: 20221026
  Serious: Yes (Life-Threatening, Hospitalization)
  Sender: FDA-Public Use
  Company Number: None

PATIENT
  Age: 82 Year
  Sex: Male

DRUGS (2)
  1. ENOXAPARIN [Suspect]
     Active Substance: ENOXAPARIN
  2. ASPIRIN [Suspect]
     Active Substance: ASPIRIN

REACTIONS (10)
  - Cholecystitis acute [None]
  - Atrial fibrillation [None]
  - Cardio-respiratory arrest [None]
  - Respiratory distress [None]
  - Hypotension [None]
  - Haemoglobin decreased [None]
  - International normalised ratio increased [None]
  - Retroperitoneal haemorrhage [None]
  - Shock haemorrhagic [None]
  - Acute kidney injury [None]

NARRATIVE: CASE EVENT DATE: 20220306
